FAERS Safety Report 12626121 (Version 1)
Quarter: 2016Q3

REPORT INFORMATION
  Report Type: Report from Study
  Country: TW (occurrence: TW)
  Receive Date: 20160805
  Receipt Date: 20160805
  Transmission Date: 20161109
  Serious: Yes (Other)
  Sender: FDA-Public Use
  Company Number: TW-REGENERON PHARMACEUTICALS, INC.-2016-19927

PATIENT

DRUGS (47)
  1. TIMOPTOL [Concomitant]
     Active Substance: TIMOLOL
     Indication: INTRAOCULAR PRESSURE INCREASED
     Dosage: 1 GTT (0.5%), QD, LEFT EYE
     Route: 047
     Dates: start: 20150209, end: 20150209
  2. MYDRIACYL [Concomitant]
     Active Substance: TROPICAMIDE
     Indication: OPHTHALMOLOGICAL EXAMINATION
     Dosage: 1 GTT PER EYE
     Route: 047
     Dates: start: 20150130
  3. CHLORAMPHENICOL [Concomitant]
     Active Substance: CHLORAMPHENICOL
     Indication: MEDICAL PROCEDURE
     Dosage: 1 GTT, QID PER STUDY DRUG APPLICATION (LEFT EYE)
     Route: 047
     Dates: start: 20150209
  4. DIFENIDOL [Concomitant]
     Indication: VERTIGO
     Dosage: 25 MG, TID
     Route: 048
     Dates: start: 20150525, end: 20150525
  5. ALPHAGAN P [Concomitant]
     Active Substance: BRIMONIDINE TARTRATE
     Dosage: 0.15 UNK, (LEFT EYE)
     Route: 047
     Dates: start: 20151201, end: 20151201
  6. VISUDYNE [Suspect]
     Active Substance: VERTEPORFIN
     Indication: POLYPOIDAL CHOROIDAL VASCULOPATHY
  7. BLINDED PLACEBO (SHAM TREATMENT) [Suspect]
     Active Substance: INVESTIGATIONAL PRODUCT
  8. EYLEA [Suspect]
     Active Substance: AFLIBERCEPT
     Dosage: 2 MG, ONCE  (RUN-IN, WEEK 4)
     Route: 031
     Dates: start: 20150310, end: 20150310
  9. ATROPINE SULFATE. [Concomitant]
     Active Substance: ATROPINE SULFATE
     Indication: ANGINA UNSTABLE
     Dosage: 1 DF, UNK
     Route: 042
     Dates: start: 20150720, end: 20150720
  10. CARVEDILOL. [Concomitant]
     Active Substance: CARVEDILOL
     Dosage: 6.25 MG, BID
     Route: 048
     Dates: start: 20150728, end: 20150811
  11. VISUDYNE [Suspect]
     Active Substance: VERTEPORFIN
  12. FLUORESCITE [Concomitant]
     Active Substance: FLUORESCEIN SODIUM
     Indication: ANGIOGRAM RETINA
     Dosage: 5 ML, ONCE
     Route: 042
     Dates: start: 20150209
  13. GENTAMICIN. [Concomitant]
     Active Substance: GENTAMICIN
     Indication: MEDICAL PROCEDURE
     Dosage: 0.3 %, ONCE, PER STUDY DRUG APPLICATION (LEFT EYE)
     Route: 047
     Dates: start: 20150209
  14. ASPIRIN PROTECT [Concomitant]
     Active Substance: ASPIRIN
     Indication: ANGINA UNSTABLE
     Dosage: 100 MG, UNK
     Route: 048
     Dates: start: 20150720, end: 20150720
  15. AZOPT [Concomitant]
     Active Substance: BRINZOLAMIDE
     Indication: INTRAOCULAR PRESSURE INCREASED
     Dosage: 1 GTT, UNK (LEFT EYE)
     Route: 047
     Dates: start: 20151013, end: 20151013
  16. ALCAINE [Concomitant]
     Active Substance: PROPARACAINE HYDROCHLORIDE
     Indication: OPHTHALMOLOGICAL EXAMINATION
     Dosage: 1 GTT PER EYE (BOTH EYES)
     Route: 047
     Dates: start: 20150130
  17. ALCAINE [Concomitant]
     Active Substance: PROPARACAINE HYDROCHLORIDE
     Indication: MEDICAL PROCEDURE
     Dosage: 1 GTT, PER STUDY DRUG APPLICATION (LEFT EYE)
     Route: 047
     Dates: start: 201502
  18. ISOKET [Concomitant]
     Active Substance: ISOSORBIDE DINITRATE
     Indication: ANGINA UNSTABLE
     Dosage: 1 DF, UNK
     Route: 042
     Dates: start: 20150720, end: 20150720
  19. AZOPT [Concomitant]
     Active Substance: BRINZOLAMIDE
     Dosage: 1 GTT, UNK (LEFT EYE)
     Route: 047
     Dates: start: 20151201, end: 20151201
  20. ASPIRIN                            /00002701/ [Concomitant]
     Active Substance: ASPIRIN
     Dosage: 100 MG, QD
     Route: 048
     Dates: start: 20160201
  21. EYLEA [Suspect]
     Active Substance: AFLIBERCEPT
     Dosage: 2 MG, ONCE (TREATMENT, WEEK 28)
     Route: 031
     Dates: start: 20150821, end: 20150821
  22. TIMOPTOL [Concomitant]
     Active Substance: TIMOLOL
     Indication: OPEN ANGLE GLAUCOMA
     Dosage: 1 GTT (0.5%), QD, BOTH EYES
     Route: 047
     Dates: start: 20150124, end: 201510
  23. DIAGNOGREEN [Concomitant]
     Indication: MEDICAL PROCEDURE
     Dosage: 5 ML, ONCE
     Route: 042
     Dates: start: 20150209
  24. DIAZEPAM. [Concomitant]
     Active Substance: DIAZEPAM
     Indication: VERTIGO
     Dosage: 2 MG, TID
     Route: 048
     Dates: start: 20150525, end: 20150525
  25. ALPHAGAN P [Concomitant]
     Active Substance: BRIMONIDINE TARTRATE
     Dosage: 0.15 UNK, (LEFT EYE)
     Route: 047
     Dates: start: 20151013, end: 20151013
  26. VISIPAQUE [Concomitant]
     Active Substance: IODIXANOL
     Indication: ANGINA UNSTABLE
     Dosage: 200 ML, UNK
     Route: 042
     Dates: start: 20150720, end: 20150720
  27. LORAZEPAM. [Concomitant]
     Active Substance: LORAZEPAM
     Indication: ANGINA UNSTABLE
     Dosage: 1 MG, UNK
     Dates: start: 20150720, end: 20150720
  28. ASPIRIN                            /00002701/ [Concomitant]
     Active Substance: ASPIRIN
     Indication: ESSENTIAL HYPERTENSION
     Dosage: 100 UNK, UNK
     Dates: start: 20150728, end: 20150908
  29. NEOSTIGMINE METHYLSULFATE. [Concomitant]
     Active Substance: NEOSTIGMINE METHYLSULFATE
     Indication: OPEN ANGLE GLAUCOMA
     Dosage: 0.01 %, TID , BOTH EYES
     Route: 047
     Dates: start: 20160521
  30. ALPHAGAN P [Concomitant]
     Active Substance: BRIMONIDINE TARTRATE
     Indication: INTRAOCULAR PRESSURE INCREASED
     Dosage: 0.15 %, UNK (LEFT EYE)
     Route: 047
     Dates: start: 20150602, end: 20150602
  31. PROPRANOLOL [Concomitant]
     Active Substance: PROPRANOLOL\PROPRANOLOL HYDROCHLORIDE
     Indication: CORONARY ARTERY DISEASE
     Dosage: UNK UNK, BID
     Route: 048
     Dates: start: 2015, end: 2015
  32. SILVINOL [Concomitant]
     Active Substance: NICORANDIL
     Indication: CORONARY ARTERY DISEASE
     Dosage: 5 MG, TID
     Route: 048
     Dates: start: 20150721, end: 20150722
  33. LOPERAMIDE [Concomitant]
     Active Substance: LOPERAMIDE
     Indication: NASOPHARYNGITIS
     Dosage: 2 MG, TID
     Route: 048
     Dates: start: 20151106, end: 20151109
  34. CARVEDILOL. [Concomitant]
     Active Substance: CARVEDILOL
     Indication: ESSENTIAL HYPERTENSION
     Dosage: 6.25 MG, BID
     Route: 048
     Dates: start: 20160302
  35. TIMOPTOL [Concomitant]
     Active Substance: TIMOLOL
     Dosage: 1 GTT (0.5%), QD, BOTH EYES
     Route: 047
     Dates: start: 20160312
  36. NTG [Concomitant]
     Active Substance: NITROGLYCERIN
     Indication: ANGINA UNSTABLE
     Dosage: 50 ML, QD
     Dates: start: 20150720, end: 20150720
  37. SANCOBA [Concomitant]
     Active Substance: CYANOCOBALAMIN
     Indication: POSTOPERATIVE CARE
     Dosage: 0.02 %, TID (RIGHT EYE)
     Route: 047
     Dates: start: 20151219, end: 20151222
  38. EYLEA [Suspect]
     Active Substance: AFLIBERCEPT
     Indication: POLYPOIDAL CHOROIDAL VASCULOPATHY
     Dosage: 2 MG, ONCE (BASELINE WEEK0)
     Route: 031
     Dates: start: 20150209, end: 20150209
  39. EYLEA [Suspect]
     Active Substance: AFLIBERCEPT
     Dosage: 2 MG, ONCE  (RUN-IN, WEEK 8)
     Route: 031
     Dates: start: 20150407, end: 20150407
  40. EYLEA [Suspect]
     Active Substance: AFLIBERCEPT
     Dosage: 2 MG, ONCE  (TREATMENT, WEEK 16)
     Route: 031
     Dates: start: 20150602, end: 20150602
  41. EYLEA [Suspect]
     Active Substance: AFLIBERCEPT
     Dosage: 2 MG, ONCE (TREATMENT, WEEK 36)
     Route: 031
     Dates: start: 20151013, end: 20151013
  42. EYLEA [Suspect]
     Active Substance: AFLIBERCEPT
     Dosage: 2 MG, ONCE (TREATMENT, WEEK 44)
     Route: 031
     Dates: start: 20151201, end: 20151201
  43. PLAVIX [Concomitant]
     Active Substance: CLOPIDOGREL BISULFATE
     Indication: ANGINA UNSTABLE
     Dosage: 75 MG, UNK
     Route: 048
     Dates: start: 20150720, end: 20150720
  44. SODIUM CHLORIDE. [Concomitant]
     Active Substance: SODIUM CHLORIDE
     Indication: ANGINA UNSTABLE
     Dosage: 1000 ML, UNK
     Route: 042
     Dates: start: 20150720, end: 20150720
  45. SANCOBA [Concomitant]
     Active Substance: CYANOCOBALAMIN
     Indication: OPEN ANGLE GLAUCOMA
     Dosage: 0.02 %, TID (RIGHT EYE)
     Route: 047
     Dates: start: 20160109, end: 20160112
  46. SANCOBA [Concomitant]
     Active Substance: CYANOCOBALAMIN
     Dosage: 0.02 %, TID (RIGHT EYE)
     Route: 047
     Dates: start: 20160312, end: 20160315
  47. PROPAFENONE HYDROCHLORIDE. [Concomitant]
     Active Substance: PROPAFENONE HYDROCHLORIDE
     Indication: ARRHYTHMIA
     Dosage: 150 MG, BID
     Route: 048
     Dates: start: 20150811, end: 20150908

REACTIONS (1)
  - Angina pectoris [Recovered/Resolved]

NARRATIVE: CASE EVENT DATE: 20160129
